FAERS Safety Report 6954788-6 (Version None)
Quarter: 2010Q3

REPORT INFORMATION
  Report Type: 
  Country: None (occurrence: None)
  Receive Date: 20100830
  Receipt Date: 20100818
  Transmission Date: 20110219
  Serious: No
  Sender: FDA-Public Use
  Company Number: US-ASTRAZENECA-2010SE35954

PATIENT
  Age: 68 Year
  Sex: Female
  Weight: 78 kg

DRUGS (7)
  1. NEXIUM [Suspect]
     Indication: GASTROOESOPHAGEAL REFLUX DISEASE
     Route: 048
     Dates: start: 20090101
  2. NEXIUM [Suspect]
     Indication: GASTRITIS
     Route: 048
     Dates: start: 20090101
  3. GLYBURIDE [Concomitant]
  4. LANTUS [Concomitant]
  5. JANUVIA [Concomitant]
  6. LISINOPRIL [Concomitant]
  7. TRAMADOL HCL [Concomitant]

REACTIONS (1)
  - NO ADVERSE EVENT [None]
